FAERS Safety Report 7435038-3 (Version None)
Quarter: 2011Q2

REPORT INFORMATION
  Report Type: 
  Country: None (occurrence: None)
  Receive Date: 20110425
  Receipt Date: 20110411
  Transmission Date: 20111010
  Serious: Yes (Hospitalization, Other)
  Sender: FDA-Public Use
  Company Number: PHHY2011FR30636

PATIENT
  Age: 81 Year
  Sex: Male

DRUGS (14)
  1. COVERSYL                                /BEL/ [Concomitant]
     Dosage: 2 MG, 1 DF QD
  2. SYMBICORT [Concomitant]
  3. PREVISCAN [Concomitant]
     Dosage: 0.5 DF QD
  4. FUROSEMIDE [Concomitant]
     Dosage: 40 MG ,1 DF QD
  5. PERINDOPRIL [Concomitant]
     Dosage: 2 MG, QD
  6. AMIODARONE [Concomitant]
     Dosage: 200 MG, QD
  7. ESOMEPRAZOLE [Concomitant]
     Dosage: 25 MG FILM-COATED TABLET, 1 DF QD
  8. CORDARONE [Concomitant]
     Dosage: 1 DF, QID
  9. COVERSYL                                /BEL/ [Concomitant]
     Dosage: 5 MG FILM-COATED TABLET, 0.5 DF QD
  10. PROSCAR [Concomitant]
     Dosage: 1 DF, QD
  11. ATARAX [Concomitant]
     Dosage: 25 MG, QD
  12. AMN107 [Suspect]
     Dosage: 200 MG DAILY
     Dates: start: 20090902, end: 20100701
  13. PREVISCAN [Concomitant]
  14. AVLOCARDYL [Concomitant]
     Dosage: 50 MG 1 DF BID

REACTIONS (3)
  - CARDIAC FAILURE [None]
  - HYPERTHYROIDISM [None]
  - ATRIAL FIBRILLATION [None]
